FAERS Safety Report 13001660 (Version 1)
Quarter: 2016Q4

REPORT INFORMATION
  Report Type: Spontaneous
  Country: US (occurrence: US)
  Receive Date: 20161205
  Receipt Date: 20161205
  Transmission Date: 20170207
  Serious: Yes (Hospitalization)
  Sender: FDA-Public Use
  Company Number: None

PATIENT
  Age: 36 Year
  Sex: Female
  Weight: 54 kg

DRUGS (1)
  1. METOCLOPRAMIDE. [Suspect]
     Active Substance: METOCLOPRAMIDE
     Indication: NAUSEA
     Dosage: ?          QUANTITY:20 TABLET(S); EVERY 6 HOURS?
     Route: 048

REACTIONS (2)
  - Malaise [None]
  - Akathisia [None]

NARRATIVE: CASE EVENT DATE: 20160227
